FAERS Safety Report 5300205-1 (Version None)
Quarter: 2007Q2

REPORT INFORMATION
  Report Type: 
  Country: None (occurrence: None)
  Receive Date: 20070418
  Receipt Date: 20070410
  Transmission Date: 20071010
  Serious: Yes (Other)
  Sender: FDA-Public Use
  Company Number: PHEH2007US04858

PATIENT
  Sex: Female

DRUGS (2)
  1. AREDIA [Suspect]
     Indication: RESORPTION BONE INCREASED
     Dosage: UNK, QMO
  2. ZOMETA [Suspect]
     Indication: RESORPTION BONE INCREASED
     Dosage: UNK, QMO

REACTIONS (3)
  - ANXIETY [None]
  - OSTEONECROSIS [None]
  - PAIN [None]
